FAERS Safety Report 4319733-0 (Version None)
Quarter: 2004Q1

REPORT INFORMATION
  Report Type: 
  Country: None (occurrence: None)
  Receive Date: 20040319
  Receipt Date: 20030827
  Transmission Date: 20041129
  Serious: Yes (Death, Other)
  Sender: FDA-Public Use
  Company Number: US-GLAXOSMITHKLINE-A0423697A

PATIENT
  Age: 72 Year
  Sex: Male
  Weight: 84.1 kg

DRUGS (4)
  1. PAXIL [Suspect]
     Indication: DEPRESSION
     Route: 048
     Dates: start: 20010828, end: 20010830
  2. DOXAZOSIN MESYLATE [Concomitant]
     Dosage: 8MG PER DAY
  3. ACCUPRIL [Concomitant]
     Dosage: 10MG PER DAY
  4. HYDROCHLOROTHIAZIDE [Concomitant]
     Dosage: 25MG PER DAY

REACTIONS (1)
  - COMPLETED SUICIDE [None]
